FAERS Safety Report 8972415 (Version 1)
Quarter: 2012Q4

REPORT INFORMATION
  Report Type: Report from Study
  Country: SE (occurrence: SE)
  Receive Date: 20121218
  Receipt Date: 20121218
  Transmission Date: 20130627
  Serious: Yes (Hospitalization)
  Sender: FDA-Public Use
  Company Number: SE-ROCHE-1166929

PATIENT
  Age: 61 Year
  Sex: Male

DRUGS (4)
  1. CAPECITABINE [Suspect]
     Indication: GASTRIC CANCER
     Dosage: Cumulative dose : 2600 mg, date of last treatment : 05/Dec/2012
     Route: 048
     Dates: start: 20121004
  2. OXALIPLATIN [Suspect]
     Indication: GASTRIC CANCER
     Dosage: Cumulative dose: 780 mg, Date of last treatment : 15/Nov/2012
     Route: 042
     Dates: start: 20121004
  3. EPIRUBICIN [Suspect]
     Indication: GASTRIC CANCER
     Dosage: Cumulative dose : 300 mg,Date of last treatment : 15/Nov/2012
     Route: 042
     Dates: start: 20121004
  4. OMEPRAZOLE [Concomitant]
     Route: 065
     Dates: start: 20121128

REACTIONS (1)
  - Haematemesis [Recovered/Resolved]
